FAERS Safety Report 6958852-7 (Version None)
Quarter: 2010Q3

REPORT INFORMATION
  Report Type: 
  Country: None (occurrence: None)
  Receive Date: 20100831
  Receipt Date: 20100826
  Transmission Date: 20110219
  Serious: Yes (Other)
  Sender: FDA-Public Use
  Company Number: US-BAYER-201029431NA

PATIENT
  Age: 58 Year
  Sex: Female

DRUGS (2)
  1. BETASERON [Suspect]
     Indication: MULTIPLE SCLEROSIS
     Dosage: TOTAL DAILY DOSE: 8 MIU
     Route: 058
     Dates: start: 20100326, end: 20100725
  2. BETA BLOCKER [Concomitant]
     Indication: MYOCARDIAL INFARCTION

REACTIONS (5)
  - ATRIAL FIBRILLATION [None]
  - HEART RATE INCREASED [None]
  - SYNCOPE [None]
  - TACHYCARDIA [None]
  - VENTRICULAR EXTRASYSTOLES [None]
